FAERS Safety Report 18128199 (Version 2)
Quarter: 2020Q4

REPORT INFORMATION
  Report Type: Report from Study
  Country: IT (occurrence: IT)
  Receive Date: 20200810
  Receipt Date: 20201030
  Transmission Date: 20210113
  Serious: Yes (Hospitalization)
  Sender: FDA-Public Use
  Company Number: IT-TEVA-2020-IT-1810906

PATIENT
  Age: 71 Year
  Sex: Male

DRUGS (2)
  1. METHOTREXATE. [Suspect]
     Active Substance: METHOTREXATE
     Indication: CENTRAL NERVOUS SYSTEM LYMPHOMA
     Dosage: 3500MG
     Route: 042
     Dates: start: 20200306, end: 20200308
  2. CYTARABINE. [Suspect]
     Active Substance: CYTARABINE
     Indication: CENTRAL NERVOUS SYSTEM LYMPHOMA
     Dosage: 4000MG
     Route: 042

REACTIONS (3)
  - Febrile neutropenia [Recovering/Resolving]
  - Pneumonitis [Recovering/Resolving]
  - Ileus paralytic [Recovering/Resolving]

NARRATIVE: CASE EVENT DATE: 20200401
